FAERS Safety Report 4692484-9 (Version None)
Quarter: 2005Q2

REPORT INFORMATION
  Report Type: 
  Country: None (occurrence: None)
  Receive Date: 20050613
  Receipt Date: 20050311
  Transmission Date: 20051028
  Serious: No
  Sender: FDA-Public Use
  Company Number: 2005-00374

PATIENT
  Age: 64 Year
  Sex: Male

DRUGS (4)
  1. VELCADE [Suspect]
     Indication: MULTIPLE MYELOMA
     Dosage: 2.60 MG, INTRAVENOUS
     Route: 040
     Dates: start: 20041027, end: 20050110
  2. ZOMETA [Concomitant]
  3. ALOXI [Concomitant]
  4. ARANESP [Concomitant]

REACTIONS (6)
  - ASTHENIA [None]
  - DECREASED APPETITE [None]
  - DEPRESSION [None]
  - INSOMNIA [None]
  - LETHARGY [None]
  - NEUROPATHY PERIPHERAL [None]
